FAERS Safety Report 16219259 (Version 1)
Quarter: 2019Q2

REPORT INFORMATION
  Report Type: Spontaneous
  Country: FR (occurrence: FR)
  Receive Date: 20190419
  Receipt Date: 20190419
  Transmission Date: 20190711
  Serious: Yes (Life-Threatening)
  Sender: FDA-Public Use
  Company Number: PHHY2018FR120390

PATIENT
  Sex: Male
  Weight: 2.58 kg

DRUGS (8)
  1. PARACETAMOL [Suspect]
     Active Substance: ACETAMINOPHEN
     Indication: FOETAL EXPOSURE DURING PREGNANCY
     Dosage: MOTHER DOSE: 3 G, QD
     Route: 064
     Dates: start: 20171024, end: 20171230
  2. CORTANCYL [Suspect]
     Active Substance: PREDNISONE
     Indication: FOETAL EXPOSURE DURING PREGNANCY
     Dosage: MOTHER DOSE: 30 MG QD
     Route: 064
     Dates: start: 20170630, end: 20171230
  3. INFLECTRA [Suspect]
     Active Substance: INFLIXIMAB-DYYB
     Indication: FOETAL EXPOSURE DURING PREGNANCY
     Dosage: MOTHER DOSE: 400 MG, QMO
     Route: 064
     Dates: start: 20171024, end: 20171230
  4. CLAMOXYL (AMOXICILLIN SODIUM) [Suspect]
     Active Substance: AMOXICILLIN SODIUM
     Indication: FOETAL EXPOSURE DURING PREGNANCY
     Dosage: UNK
     Route: 064
  5. LOVENOX [Suspect]
     Active Substance: ENOXAPARIN SODIUM
     Indication: FOETAL EXPOSURE DURING PREGNANCY
     Dosage: MOTHER DOSE: 0.4 ML, QD
     Route: 064
     Dates: start: 20171024, end: 20171230
  6. SPASFON (PHLOROGLUCINOL/TRIMETHYLPHLOROGLUCINOL) [Suspect]
     Active Substance: PHLOROGLUCINOL\1,3,5-TRIMETHOXYBENZENE
     Indication: ANALGESIC INTERVENTION SUPPORTIVE THERAPY
     Dosage: MOTHER DOSE: 6 ?G/L, QD
     Route: 064
     Dates: start: 20171128, end: 20171230
  7. DIFFU K [Suspect]
     Active Substance: POTASSIUM CHLORIDE
     Indication: FOETAL EXPOSURE DURING PREGNANCY
     Dosage: MOTHER DOSE: 2 ?G/L, QD
     Route: 064
     Dates: start: 20171024, end: 20171230
  8. INEXIUM [Suspect]
     Active Substance: ESOMEPRAZOLE
     Indication: FOETAL EXPOSURE DURING PREGNANCY
     Dosage: MOTHER DOSE: 1 DF, QD
     Route: 064
     Dates: start: 20171031, end: 20171230

REACTIONS (2)
  - Foetal malnutrition [Recovered/Resolved]
  - Premature baby [Recovering/Resolving]

NARRATIVE: CASE EVENT DATE: 20171230
